FAERS Safety Report 19233356 (Version 2)
Quarter: 2021Q4

REPORT INFORMATION
  Report Type: Spontaneous
  Country: US (occurrence: None)
  Receive Date: 20210507
  Receipt Date: 20211123
  Transmission Date: 20220303
  Serious: Yes (Other)
  Sender: FDA-Public Use
  Company Number: 2021A390381

PATIENT
  Age: 56 Year
  Sex: Male
  Weight: 81.6 kg

DRUGS (15)
  1. PRILOSEC OTC [Suspect]
     Active Substance: OMEPRAZOLE MAGNESIUM
     Indication: Gastrooesophageal reflux disease
     Route: 048
     Dates: start: 2014, end: 2017
  2. PREVACID 24 HR [Suspect]
     Active Substance: LANSOPRAZOLE
     Indication: Gastrooesophageal reflux disease
     Route: 065
     Dates: start: 2014, end: 2017
  3. LISINOPRIL [Concomitant]
     Active Substance: LISINOPRIL
     Indication: Blood pressure abnormal
     Dates: start: 2010
  4. ATORVASTATIN [Concomitant]
     Active Substance: ATORVASTATIN
     Indication: Blood cholesterol
     Dates: start: 2010
  5. ADVIL [Concomitant]
     Active Substance: IBUPROFEN
     Indication: Pain
  6. PEPCID [Concomitant]
     Active Substance: FAMOTIDINE
  7. TUMS [Concomitant]
     Active Substance: CALCIUM CARBONATE
  8. ROLAIDS [Concomitant]
     Active Substance: CALCIUM CARBONATE\MAGNESIUM HYDROXIDE
  9. ACYCLOVIR [Concomitant]
     Active Substance: ACYCLOVIR
  10. LORAZEPAM [Concomitant]
     Active Substance: LORAZEPAM
  11. AMLODIPINE BESYLATE [Concomitant]
     Active Substance: AMLODIPINE BESYLATE
  12. HYDRALAZINE [Concomitant]
     Active Substance: HYDRALAZINE HYDROCHLORIDE
  13. FLUTICASONE [Concomitant]
     Active Substance: FLUTICASONE
  14. NICOTINE [Concomitant]
     Active Substance: NICOTINE
  15. SENNA [Concomitant]
     Active Substance: SENNA LEAF\SENNOSIDES\SENNOSIDES A AND B

REACTIONS (2)
  - Acute kidney injury [Not Recovered/Not Resolved]
  - Renal failure [Unknown]

NARRATIVE: CASE EVENT DATE: 20170101
